FAERS Safety Report 22533657 (Version 1)
Quarter: 2023Q2

REPORT INFORMATION
  Report Type: Spontaneous
  Country: US (occurrence: US)
  Receive Date: 20230608
  Receipt Date: 20230608
  Transmission Date: 20230722
  Serious: No
  Sender: FDA-Public Use
  Company Number: US-DENDREON PHARMACEUTICAL LLC-2022DEN000292

PATIENT

DRUGS (3)
  1. PROVENGE [Suspect]
     Active Substance: SIPULEUCEL-T
     Indication: Prostate cancer metastatic
     Dosage: DOSE 1
     Route: 042
     Dates: start: 20220912, end: 20220912
  2. PROVENGE [Suspect]
     Active Substance: SIPULEUCEL-T
     Dosage: DOSE 2
     Route: 042
     Dates: start: 20220919, end: 20220919
  3. TUMS [Concomitant]
     Active Substance: CALCIUM CARBONATE
     Indication: Muscle spasms
     Dosage: UNK UNK, PRN
     Route: 048

REACTIONS (2)
  - Citrate toxicity [Recovered/Resolved]
  - Citrate toxicity [Recovered/Resolved]

NARRATIVE: CASE EVENT DATE: 20220916
